FAERS Safety Report 8568421-3 (Version None)
Quarter: 2012Q3

REPORT INFORMATION
  Report Type: 
  Country: None (occurrence: None)
  Receive Date: 20120803
  Receipt Date: 20120511
  Transmission Date: 20120928
  Serious: No
  Sender: FDA-Public Use
  Company Number: US-ABBOTT-12P-163-0934613-00

PATIENT
  Sex: Male
  Weight: 97.61 kg

DRUGS (3)
  1. NIASPAN [Suspect]
     Indication: CORONARY ARTERY DISEASE
     Dates: start: 20120301
  2. NIASPAN [Suspect]
  3. UNKNOWN BLOOD PRESSURE MEDICATION [Concomitant]
     Indication: BLOOD PRESSURE ABNORMAL

REACTIONS (4)
  - PARAESTHESIA [None]
  - ERYTHEMA [None]
  - FEELING HOT [None]
  - PRURITUS [None]
